FAERS Safety Report 12099579 (Version 1)
Quarter: 2016Q1

REPORT INFORMATION
  Report Type: Spontaneous
  Country: US (occurrence: None)
  Receive Date: 20160219
  Receipt Date: 20160219
  Transmission Date: 20160526
  Serious: No
  Sender: FDA-Public Use
  Company Number: None

PATIENT

DRUGS (2)
  1. OFLOXACIN. [Suspect]
     Active Substance: OFLOXACIN
     Dosage: DROPS EAR
  2. OCUFLOX [Suspect]
     Active Substance: OFLOXACIN
     Dosage: DROPS OPHTHALMIC
     Route: 047

REACTIONS (1)
  - Transcription medication error [None]
